FAERS Safety Report 5793381-8 (Version None)
Quarter: 2008Q2

REPORT INFORMATION
  Report Type: 
  Country: None (occurrence: None)
  Receive Date: 20080627
  Receipt Date: 20080617
  Transmission Date: 20081010
  Serious: No
  Sender: FDA-Public Use
  Company Number: BR-ROCHE-515666

PATIENT
  Age: 32 Year
  Sex: Female
  Weight: 55 kg

DRUGS (1)
  1. ROACUTAN [Suspect]
     Indication: SEBACEOUS GLAND DISORDER
     Route: 048
     Dates: start: 20070801, end: 20070904

REACTIONS (1)
  - ABORTION INDUCED [None]
